FAERS Safety Report 10041612 (Version 1)
Quarter: 2014Q1

REPORT INFORMATION
  Report Type: Report from Study
  Country: CN (occurrence: CN)
  Receive Date: 20140327
  Receipt Date: 20140327
  Transmission Date: 20141002
  Serious: Yes (Death)
  Sender: FDA-Public Use
  Company Number: CN-SA-2014SA037805

PATIENT
  Sex: 0

DRUGS (1)
  1. CLOPIDOGREL BISULFATE [Suspect]
     Indication: ARTERIOSCLEROSIS
     Route: 065

REACTIONS (2)
  - Death [Fatal]
  - Drug resistance [Unknown]
